FAERS Safety Report 5670533-9 (Version None)
Quarter: 2008Q1

REPORT INFORMATION
  Report Type: 
  Country: None (occurrence: None)
  Receive Date: 20080318
  Receipt Date: 20080311
  Transmission Date: 20080703
  Serious: Yes (Hospitalization)
  Sender: FDA-Public Use
  Company Number: PHNU2008DE01257

PATIENT
  Sex: Female

DRUGS (6)
  1. KEPPRA [Concomitant]
     Dosage: 750 MG/DAY
     Route: 065
     Dates: start: 20050101
  2. ACETYLSALICYLIC ACID [Concomitant]
     Dosage: 1 DF, QD
     Route: 065
  3. AMLODIPINE [Concomitant]
     Dosage: 1 DF, QD
     Route: 065
  4. TEGRETAL RETARD [Suspect]
     Indication: EPILEPSY
     Dosage: UNK, UNK
  5. TEGRETAL RETARD [Suspect]
     Dosage: 600 MG, BID
     Route: 048
     Dates: start: 20050101, end: 20080301
  6. RIVOTRIL [Concomitant]
     Dosage: UNK, UNK
     Route: 065

REACTIONS (5)
  - ANTICONVULSANT DRUG LEVEL INCREASED [None]
  - LABORATORY TEST ABNORMAL [None]
  - NERVOUS SYSTEM DISORDER [None]
  - PNEUMONIA ASPIRATION [None]
  - SOMNOLENCE [None]
